FAERS Safety Report 17428550 (Version 1)
Quarter: 2020Q1

REPORT INFORMATION
  Report Type: Spontaneous
  Country: US (occurrence: US)
  Receive Date: 20200214
  Receipt Date: 20200214
  Transmission Date: 20200409
  Serious: Yes (Other)
  Sender: FDA-Public Use
  Company Number: None

PATIENT
  Sex: Male

DRUGS (2)
  1. REVATIO [Suspect]
     Active Substance: SILDENAFIL CITRATE
  2. LEVITRA [Suspect]
     Active Substance: VARDENAFIL HYDROCHLORIDE

REACTIONS (2)
  - Dizziness [None]
  - Swelling [None]
